FAERS Safety Report 17834823 (Version 4)
Quarter: 2020Q3

REPORT INFORMATION
  Report Type: Report from Study
  Country: None (occurrence: US)
  Receive Date: 20200528
  Receipt Date: 20200915
  Transmission Date: 20201103
  Serious: Yes (Other)
  Sender: FDA-Public Use
  Company Number: US-ABBVIE-20K-163-3417201-00

PATIENT
  Age: 51 Year
  Sex: Female

DRUGS (1)
  1. SKYRIZI [Suspect]
     Active Substance: RISANKIZUMAB-RZAA
     Indication: PSORIASIS
     Route: 058
     Dates: start: 20191022

REACTIONS (14)
  - Abdominal distension [Not Recovered/Not Resolved]
  - Haemorrhage [Not Recovered/Not Resolved]
  - Somnolence [Unknown]
  - Defaecation urgency [Not Recovered/Not Resolved]
  - Post procedural erythema [Not Recovered/Not Resolved]
  - Uterine cancer [Not Recovered/Not Resolved]
  - Ovarian cancer stage III [Not Recovered/Not Resolved]
  - Bladder cancer [Unknown]
  - Feeling abnormal [Not Recovered/Not Resolved]
  - Cervix carcinoma [Not Recovered/Not Resolved]
  - Gastrointestinal carcinoma [Unknown]
  - Rash [Not Recovered/Not Resolved]
  - Post procedural complication [Unknown]
  - Fatigue [Not Recovered/Not Resolved]

NARRATIVE: CASE EVENT DATE: 202002
